FAERS Safety Report 22532189 (Version 1)
Quarter: 2023Q2

REPORT INFORMATION
  Report Type: Spontaneous
  Country: US (occurrence: None)
  Receive Date: 20230606
  Receipt Date: 20230606
  Transmission Date: 20230722
  Serious: No
  Sender: FDA-Public Use
  Company Number: None

PATIENT
  Age: 70 Year
  Sex: Female

DRUGS (1)
  1. PRALUENT [Suspect]
     Active Substance: ALIROCUMAB
     Indication: Hyperlipidaemia
     Dosage: 75MG Q 2 WK SUB-Q?
     Route: 058
     Dates: start: 20230315

REACTIONS (1)
  - Fatigue [None]

NARRATIVE: CASE EVENT DATE: 20230316
